FAERS Safety Report 10679731 (Version 1)
Quarter: 2014Q4

REPORT INFORMATION
  Report Type: Spontaneous
  Country: US (occurrence: US)
  Receive Date: 20141229
  Receipt Date: 20141229
  Transmission Date: 20150529
  Serious: No
  Sender: FDA-Public Use
  Company Number: US-GLAXOSMITHKLINE-US2014GSK043085

PATIENT
  Sex: Male

DRUGS (1)
  1. AVODART [Suspect]
     Active Substance: DUTASTERIDE
     Indication: PRODUCT USED FOR UNKNOWN INDICATION
     Dosage: 0.5 MG, U
     Route: 065

REACTIONS (6)
  - Visual impairment [Unknown]
  - Rhinitis [Unknown]
  - Muscle strain [Unknown]
  - Headache [Unknown]
  - Ligament sprain [Unknown]
  - Post-traumatic stress disorder [Unknown]
